FAERS Safety Report 15473238 (Version 1)
Quarter: 2018Q4

REPORT INFORMATION
  Report Type: Spontaneous
  Country: FR (occurrence: FR)
  Receive Date: 20181008
  Receipt Date: 20181008
  Transmission Date: 20190205
  Serious: Yes (Other)
  Sender: FDA-Public Use
  Company Number: FR-ABBVIE-18S-056-2512051-00

PATIENT
  Age: 77 Year
  Sex: Male

DRUGS (3)
  1. MONOPROST [Suspect]
     Active Substance: LATANOPROST
     Indication: GLAUCOMA
     Dosage: UNK,NON RENSEIGN?
     Route: 031
  2. SERETIDE [Suspect]
     Active Substance: FLUTICASONE PROPIONATE\SALMETEROL XINAFOATE
     Indication: CHRONIC OBSTRUCTIVE PULMONARY DISEASE
     Dosage: UNK,NON RENSEIGN?E
     Route: 055
  3. TARKA [Suspect]
     Active Substance: TRANDOLAPRIL\VERAPAMIL HYDROCHLORIDE
     Indication: HYPERTENSION
     Dosage: 1 DF, QD
     Route: 048
     Dates: start: 2014, end: 2018

REACTIONS (1)
  - Toxic skin eruption [Not Recovered/Not Resolved]

NARRATIVE: CASE EVENT DATE: 201711
